FAERS Safety Report 4994907-4 (Version None)
Quarter: 2006Q2

REPORT INFORMATION
  Report Type: 
  Country: None (occurrence: None)
  Receive Date: 20060503
  Receipt Date: 20060421
  Transmission Date: 20061013
  Serious: Yes (Other)
  Sender: FDA-Public Use
  Company Number: 2006PV012451

PATIENT
  Age: 31 Year
  Sex: Female
  Weight: 182.7996 kg

DRUGS (11)
  1. BYETTA [Suspect]
     Indication: DIABETES MELLITUS NON-INSULIN-DEPENDENT
     Dosage: 5 MCG;BID;SC
     Route: 058
     Dates: start: 20060419
  2. METFORMIN [Concomitant]
  3. OVCON-35 [Concomitant]
  4. PREVACID [Concomitant]
  5. HYZAAR 100/50 [Concomitant]
  6. MULTI-VITAMIN [Concomitant]
  7. SINGULAIR [Concomitant]
  8. LODINE [Concomitant]
  9. PROZAC [Concomitant]
  10. CALCIUM CHANNEL BLOCKER [Concomitant]
  11. XANAX [Concomitant]

REACTIONS (2)
  - DECREASED APPETITE [None]
  - LOSS OF CONSCIOUSNESS [None]
